FAERS Safety Report 5325800-5 (Version None)
Quarter: 2007Q2

REPORT INFORMATION
  Report Type: 
  Country: None (occurrence: None)
  Receive Date: 20070510
  Receipt Date: 20070424
  Transmission Date: 20071010
  Serious: Yes (Hospitalization)
  Sender: FDA-Public Use
  Company Number: DSA_29828_2007

PATIENT
  Sex: Female

DRUGS (2)
  1. TAVOR / 00273201/ (TAVOR) 0.5 MG [Suspect]
     Dosage: 3 MG 1X ORAL
     Route: 048
     Dates: start: 20070423, end: 20070423
  2. ALCOHOL/00002101/ (ALCOHOL) 1 DF [Suspect]
     Dosage: 1 DF 1X IRAK
     Route: 013
     Dates: start: 20070423, end: 20070423

REACTIONS (2)
  - DRUG ABUSER [None]
  - OXYGEN SATURATION DECREASED [None]
